FAERS Safety Report 7468968-7 (Version None)
Quarter: 2011Q2

REPORT INFORMATION
  Report Type: 
  Country: None (occurrence: None)
  Receive Date: 20110429
  Receipt Date: 20110415
  Transmission Date: 20111010
  Serious: Yes (Hospitalization)
  Sender: FDA-Public Use
  Company Number: TPA2011A01642

PATIENT
  Sex: Male

DRUGS (1)
  1. ACTOS [Suspect]
     Indication: DIABETES MELLITUS
     Dosage: 15 MG, 1 IN 1 D, PER ORAL
     Route: 048

REACTIONS (5)
  - WEIGHT INCREASED [None]
  - CORONARY ARTERY DISEASE [None]
  - DYSPNOEA [None]
  - CHEST PAIN [None]
  - CARDIAC FAILURE [None]
